FAERS Safety Report 13022374 (Version 5)
Quarter: 2018Q2

REPORT INFORMATION
  Report Type: Report from Study
  Country: PA (occurrence: PA)
  Receive Date: 20161213
  Receipt Date: 20180504
  Transmission Date: 20180711
  Serious: Yes (Other)
  Sender: FDA-Public Use
  Company Number: PHHY2015PA055896

PATIENT
  Age: 35 Year
  Sex: Female

DRUGS (1)
  1. GILENYA [Suspect]
     Active Substance: FINGOLIMOD HYDROCHLORIDE
     Indication: PRODUCT USED FOR UNKNOWN INDICATION
     Dosage: 0.5 MG, UNK
     Route: 065

REACTIONS (26)
  - Muscle rigidity [Unknown]
  - Disease progression [Unknown]
  - Concomitant disease aggravated [Unknown]
  - Nasopharyngitis [Unknown]
  - Limb discomfort [Unknown]
  - Pain in extremity [Unknown]
  - Musculoskeletal chest pain [Unknown]
  - Facial pain [Not Recovered/Not Resolved]
  - Paralysis [Recovered/Resolved]
  - Visual impairment [Unknown]
  - Arthralgia [Unknown]
  - Pain [Unknown]
  - Head titubation [Not Recovered/Not Resolved]
  - Alopecia [Unknown]
  - Dizziness [Unknown]
  - Blood pressure systolic increased [Unknown]
  - Headache [Unknown]
  - Muscle strain [Unknown]
  - Acne [Unknown]
  - Fall [Unknown]
  - Gait disturbance [Unknown]
  - Musculoskeletal discomfort [Unknown]
  - Feeling abnormal [Unknown]
  - Muscular weakness [Not Recovered/Not Resolved]
  - Abdominal distension [Unknown]
  - Back pain [Not Recovered/Not Resolved]

NARRATIVE: CASE EVENT DATE: 20161205
